FAERS Safety Report 7042221-8 (Version None)
Quarter: 2010Q3

REPORT INFORMATION
  Report Type: 
  Country: None (occurrence: None)
  Receive Date: 20100929
  Receipt Date: 20100809
  Transmission Date: 20110219
  Serious: No
  Sender: FDA-Public Use
  Company Number: US-WYE-H16824110

PATIENT
  Sex: Female

DRUGS (5)
  1. PRISTIQ [Suspect]
     Indication: ANXIETY
     Dosage: 50 MG 1X PER 1 DAY, ORAL
     Route: 048
     Dates: start: 20100806
  2. PRISTIQ [Suspect]
     Indication: SLEEP DISORDER
     Dosage: 50 MG 1X PER 1 DAY, ORAL
     Route: 048
     Dates: start: 20100806
  3. TOPAMAX [Concomitant]
  4. QVAR [Concomitant]
  5. FIORICET [Concomitant]

REACTIONS (3)
  - DIZZINESS [None]
  - NAUSEA [None]
  - VERTIGO [None]
